FAERS Safety Report 16913078 (Version 7)
Quarter: 2019Q4

REPORT INFORMATION
  Report Type: Spontaneous
  Country: IT (occurrence: IT)
  Receive Date: 20191014
  Receipt Date: 20191225
  Transmission Date: 20200122
  Serious: Yes (Other)
  Sender: FDA-Public Use
  Company Number: IT-AUROBINDO-AUR-APL-2019-066013

PATIENT
  Age: 73 Year
  Sex: Male

DRUGS (8)
  1. CLOPIDOGREL [Suspect]
     Active Substance: CLOPIDOGREL BISULFATE
     Indication: ANTICOAGULANT THERAPY
     Dosage: UNK
     Route: 065
     Dates: start: 2001
  2. SELEPARINA [Suspect]
     Active Substance: NADROPARIN CALCIUM
     Indication: ANTICOAGULANT THERAPY
     Dosage: 0.6 MILLIGRAM, TWO TIMES A DAY (1.2 ML)
     Route: 065
     Dates: start: 20180110, end: 20180220
  3. SIMVASTATIN. [Suspect]
     Active Substance: SIMVASTATIN
     Indication: THROMBOSIS
     Dosage: UNK
     Route: 065
     Dates: start: 2001
  4. KETOROLAC [Suspect]
     Active Substance: KETOROLAC TROMETHAMINE
     Indication: ABDOMINAL PAIN
     Dosage: 3 DOSAGE FORM
     Route: 065
  5. ENOXAPARIN [Suspect]
     Active Substance: ENOXAPARIN
     Indication: ANTICOAGULANT THERAPY
     Dosage: 0.8 MILLILITER, DAILY (0.4 ML/4000 IU BID (1 MG/KG TWICE DAILY) FOR 6
     Route: 065
  6. SELEPARINA [Suspect]
     Active Substance: NADROPARIN CALCIUM
     Indication: THROMBOSIS
  7. ENOXAPARIN [Suspect]
     Active Substance: ENOXAPARIN
     Indication: THROMBOSIS
     Dosage: 1 MILLIGRAM/KILOGRAM, TWO TIMES A DAY
     Route: 065
  8. ESOMEPRAZOLE. [Suspect]
     Active Substance: ESOMEPRAZOLE MAGNESIUM
     Indication: THROMBOSIS
     Dosage: UNK
     Route: 065

REACTIONS (5)
  - Drug-induced liver injury [Recovered/Resolved]
  - Fatigue [Unknown]
  - Cholestasis [Unknown]
  - Off label use [Unknown]
  - Aspartate aminotransferase increased [Recovered/Resolved]
